FAERS Safety Report 8463587 (Version 3)
Quarter: 2013Q3

REPORT INFORMATION
  Report Type: Spontaneous
  Country: US (occurrence: US)
  Receive Date: 20120316
  Receipt Date: 20130716
  Transmission Date: 20140515
  Serious: Yes (Death)
  Sender: FDA-Public Use
  Company Number: US-JNJFOC-20120104901

PATIENT
  Age: 76 Year
  Sex: Female

DRUGS (8)
  1. REMICADE [Suspect]
     Indication: RHEUMATOID ARTHRITIS
     Route: 042
  2. REMICADE [Suspect]
     Indication: RHEUMATOID ARTHRITIS
     Route: 042
     Dates: start: 20111020
  3. REMICADE [Suspect]
     Indication: RHEUMATOID ARTHRITIS
     Route: 042
     Dates: start: 20110914
  4. METHOTREXATE [Concomitant]
     Route: 065
  5. FOLIC ACID [Concomitant]
     Route: 065
  6. PREDNISONE [Concomitant]
     Route: 065
  7. FUROSEMIDE [Concomitant]
     Route: 065
  8. MAXZIDE [Concomitant]
     Route: 065

REACTIONS (10)
  - Fall [Unknown]
  - Death [Fatal]
  - Hypotension [Unknown]
  - Head injury [Unknown]
  - Dehydration [Unknown]
  - Vomiting [Unknown]
  - Oedema [Unknown]
  - Back pain [Unknown]
  - Anaemia [Unknown]
  - Asthenia [Unknown]
